FAERS Safety Report 5898096-3 (Version None)
Quarter: 2008Q3

REPORT INFORMATION
  Report Type: 
  Country: None (occurrence: None)
  Receive Date: 20080908
  Receipt Date: 20080715
  Transmission Date: 20090109
  Serious: Yes (Other)
  Sender: FDA-Public Use
  Company Number: 002#2#2007-00233

PATIENT
  Age: 63 Year
  Sex: Female
  Weight: 113.3993 kg

DRUGS (10)
  1. NEUPRO [Suspect]
     Indication: PARKINSON'S DISEASE
     Dosage: SEE IMAGE
     Route: 062
     Dates: start: 20070101, end: 20070101
  2. NEUPRO [Suspect]
     Indication: PARKINSON'S DISEASE
     Dosage: SEE IMAGE
     Route: 062
     Dates: start: 20070101, end: 20070101
  3. NEUPRO [Suspect]
     Indication: PARKINSON'S DISEASE
     Dosage: SEE IMAGE
     Route: 062
     Dates: start: 20070101, end: 20070101
  4. NEUPRO [Suspect]
     Indication: PARKINSON'S DISEASE
     Dosage: SEE IMAGE
     Route: 062
     Dates: start: 20070901, end: 20080330
  5. SINEMET [Concomitant]
  6. COMTAN [Concomitant]
  7. LEVOTHYROXINE SODIUM [Concomitant]
  8. TRAZODONE HCL [Concomitant]
  9. EFFEXOR [Concomitant]
  10. TRICOR [Concomitant]

REACTIONS (2)
  - INSOMNIA [None]
  - SUDDEN ONSET OF SLEEP [None]
